FAERS Safety Report 22008866 (Version 2)
Quarter: 2023Q1

REPORT INFORMATION
  Report Type: Other
  Country: ES (occurrence: ES)
  Receive Date: 20230220
  Receipt Date: 20230317
  Transmission Date: 20230418
  Serious: Yes (Other)
  Sender: FDA-Public Use
  Company Number: ES-ALVOGEN-2023089232

PATIENT
  Age: 52 Year
  Sex: Male

DRUGS (2)
  1. OXYCODONE [Suspect]
     Active Substance: OXYCODONE
     Indication: Osteoarthritis
  2. OXYCODONE [Suspect]
     Active Substance: OXYCODONE
     Indication: Osteoarthritis
     Dosage: INCREASING THE DOSE TO 60 MG THREE MONTHS LATER.

REACTIONS (2)
  - Drug-induced liver injury [Unknown]
  - Off label use [Unknown]
